FAERS Safety Report 13838210 (Version 1)
Quarter: 2017Q3

REPORT INFORMATION
  Report Type: Spontaneous
  Country: US (occurrence: US)
  Receive Date: 20170807
  Receipt Date: 20170807
  Transmission Date: 20171127
  Serious: Yes (Hospitalization, Other)
  Sender: FDA-Public Use
  Company Number: US-009507513-1708USA000099

PATIENT
  Age: 59 Year
  Sex: Female
  Weight: 65.9 kg

DRUGS (1)
  1. KEYTRUDA [Suspect]
     Active Substance: PEMBROLIZUMAB
     Indication: METASTASES TO MENINGES
     Dosage: 200 MG, Q3W
     Route: 042
     Dates: start: 20170425, end: 20170605

REACTIONS (9)
  - Nausea [Unknown]
  - Deep vein thrombosis [Unknown]
  - Hydronephrosis [Unknown]
  - Vomiting [Unknown]
  - Asthenia [Recovering/Resolving]
  - Renal vein thrombosis [Unknown]
  - Dehydration [Unknown]
  - Malignant neoplasm progression [Unknown]
  - Product use in unapproved indication [Unknown]

NARRATIVE: CASE EVENT DATE: 2017
